FAERS Safety Report 4668428-2 (Version None)
Quarter: 2005Q2

REPORT INFORMATION
  Report Type: 
  Country: None (occurrence: None)
  Receive Date: 20050523
  Receipt Date: 20050412
  Transmission Date: 20051028
  Serious: Yes (Other)
  Sender: FDA-Public Use
  Company Number: PHEH2005US04218

PATIENT
  Sex: Female

DRUGS (1)
  1. AREDIA [Suspect]

REACTIONS (13)
  - ASEPTIC NECROSIS BONE [None]
  - BONE DEBRIDEMENT [None]
  - BONE DISORDER [None]
  - FISTULA [None]
  - FISTULA REPAIR [None]
  - NECROSIS [None]
  - ORAL PAIN [None]
  - ORAL SOFT TISSUE DISORDER [None]
  - OSTEOLYSIS [None]
  - OSTEOMYELITIS [None]
  - PERIODONTAL DISEASE [None]
  - TOOTH EXTRACTION [None]
  - WEIGHT DECREASED [None]
